FAERS Safety Report 5215391-1 (Version None)
Quarter: 2007Q1

REPORT INFORMATION
  Report Type: 
  Country: None (occurrence: None)
  Receive Date: 20070116
  Receipt Date: 20070104
  Transmission Date: 20070707
  Serious: Yes (Other)
  Sender: FDA-Public Use
  Company Number: 2007S1000008

PATIENT
  Age: 34 Year
  Sex: Female
  Weight: 61.0088 kg

DRUGS (2)
  1. ACITRETIN [Suspect]
     Indication: PSORIASIS
     Dosage: 20 MG; QD; PO
     Route: 048
     Dates: start: 20061010
  2. DOXEPIN HCL [Concomitant]

REACTIONS (5)
  - ABNORMAL SENSATION IN EYE [None]
  - DIZZINESS [None]
  - HEADACHE [None]
  - INTRACRANIAL PRESSURE INCREASED [None]
  - MALAISE [None]
